FAERS Safety Report 8134160-6 (Version None)
Quarter: 2012Q1

REPORT INFORMATION
  Report Type: 
  Country: None (occurrence: None)
  Receive Date: 20120213
  Receipt Date: 20120213
  Transmission Date: 20120608
  Serious: Yes (Hospitalization)
  Sender: FDA-Public Use
  Company Number: None

PATIENT
  Age: 66 Year
  Sex: Female
  Weight: 57.6 kg

DRUGS (10)
  1. METHIMAZOLE [Concomitant]
  2. ABRAXANE [Suspect]
     Indication: HEAD AND NECK CANCER
     Dosage: 50 MG/M2 WEEKLY; IV
     Route: 042
     Dates: start: 20110809, end: 20110815
  3. ROXICET ORAL SOLUTION (OXYCODONE + APAP) [Concomitant]
  4. SENNA-MINT WAF [Concomitant]
  5. IMRT [Suspect]
     Indication: HEAD AND NECK CANCER
     Dosage: 2GY PER FX
     Dates: start: 20110809, end: 20110822
  6. CALCIUM CARBONATE/VITAMIN D [Concomitant]
  7. LORAZEPAM [Concomitant]
  8. CARBOPLATIN [Suspect]
     Indication: HEAD AND NECK CANCER
     Dosage: AUC 1.5 WEEKLY; IV
     Route: 042
     Dates: start: 20110809, end: 20110815
  9. METOCLOPRAMIDE HYDROCHLORIDE [Concomitant]
  10. MULTI-VITAMINS [Concomitant]

REACTIONS (3)
  - PULMONARY EMBOLISM [None]
  - POST PROCEDURAL COMPLICATION [None]
  - PNEUMONIA ASPIRATION [None]
